FAERS Safety Report 6273995-1 (Version None)
Quarter: 2009Q3

REPORT INFORMATION
  Report Type: 
  Country: None (occurrence: None)
  Receive Date: 20090716
  Receipt Date: 20090709
  Transmission Date: 20100115
  Serious: Yes (Hospitalization)
  Sender: FDA-Public Use
  Company Number: CHNY2009AU02758

PATIENT
  Age: 59 Year
  Sex: Male

DRUGS (3)
  1. NICOTINE [Suspect]
     Dosage: 4 MG, CHEWED; HALF A 4 MG GUM, AVERAGE OF 27 GUMS DAILY, CHEWED
  2. NICOTINE [Suspect]
     Indication: SMOKING CESSATION THERAPY
     Dosage: 2 MG, CHEWED
  3. ALL OTHER THERAPEUTIC PRODUCTS (NO INGREDIENTS/SUBSTANCES) [Concomitant]

REACTIONS (7)
  - ABDOMINAL DISCOMFORT [None]
  - INTENTIONAL DRUG MISUSE [None]
  - NASOPHARYNGITIS [None]
  - NAUSEA [None]
  - OVERDOSE [None]
  - VISUAL FIELD DEFECT [None]
  - WRONG TECHNIQUE IN DRUG USAGE PROCESS [None]
